FAERS Safety Report 12756347 (Version 2)
Quarter: 2016Q4

REPORT INFORMATION
  Report Type: Spontaneous
  Country: FR (occurrence: FR)
  Receive Date: 20160916
  Receipt Date: 20161018
  Transmission Date: 20170207
  Serious: No
  Sender: FDA-Public Use
  Company Number: FR-009507513-1609FRA008098

PATIENT
  Sex: Male

DRUGS (2)
  1. DEPAKINE CHRONO [Concomitant]
     Active Substance: VALPROATE SODIUM
     Indication: EPILEPSY
     Dosage: 2 TABLETS DAILY
     Route: 048
     Dates: start: 199503
  2. SINEMET [Suspect]
     Active Substance: CARBIDOPA\LEVODOPA
     Indication: PARKINSON^S DISEASE
     Dosage: 1.5 TABLET IN THE MORNING, 1.5 TABLET AT NOON,1 TABLET, IN THE EVENING
     Route: 048
     Dates: start: 200603

REACTIONS (2)
  - Product use issue [Unknown]
  - No adverse event [Unknown]
